FAERS Safety Report 14866428 (Version 2)
Quarter: 2019Q3

REPORT INFORMATION
  Report Type: Report from Study
  Country: US (occurrence: US)
  Receive Date: 20180508
  Receipt Date: 20190814
  Transmission Date: 20191004
  Serious: Yes (Hospitalization)
  Sender: FDA-Public Use
  Company Number: US-ALKERMES INC.-ALK-2018-000218

PATIENT
  Age: 39 Year
  Sex: Male

DRUGS (6)
  1. BLINDED BUPROPION [Suspect]
     Active Substance: BUPROPION
     Indication: DRUG USE DISORDER
     Dosage: UNK UNK, Q3WK
     Route: 030
     Dates: start: 20171127
  2. BLINDED BUPROPION [Suspect]
     Active Substance: BUPROPION
     Dosage: UNK UNK, QD
     Route: 048
     Dates: start: 20171127
  3. VIVITROL [Suspect]
     Active Substance: NALTREXONE
     Indication: DRUG USE DISORDER
     Dosage: UNK UNK, Q3WK
     Route: 030
     Dates: start: 20171127
  4. VIVITROL [Suspect]
     Active Substance: NALTREXONE
     Dosage: UNK UNK, QD
     Route: 048
     Dates: start: 20171127
  5. BLINDED PLACEBO [Suspect]
     Active Substance: INVESTIGATIONAL PRODUCT
     Dosage: UNK UNK, QD
     Route: 048
     Dates: start: 20171127
  6. BLINDED PLACEBO [Suspect]
     Active Substance: INVESTIGATIONAL PRODUCT
     Indication: DRUG USE DISORDER
     Dosage: UNK UNK, Q3WK
     Route: 030
     Dates: start: 20171127

REACTIONS (1)
  - Pneumonia [Recovered/Resolved]

NARRATIVE: CASE EVENT DATE: 20180115
